FAERS Safety Report 12882706 (Version 1)
Quarter: 2016Q4

REPORT INFORMATION
  Report Type: Spontaneous
  Country: IT (occurrence: IT)
  Receive Date: 20161025
  Receipt Date: 20161025
  Transmission Date: 20170207
  Serious: Yes (Hospitalization)
  Sender: FDA-Public Use
  Company Number: IT-IPCA LABORATORIES LIMITED-IPC201610-000891

PATIENT
  Age: 78 Year
  Sex: Female

DRUGS (10)
  1. METOPROLOL. [Concomitant]
     Active Substance: METOPROLOL
  2. LOSARTAN. [Concomitant]
     Active Substance: LOSARTAN
  3. HYDROCHLOROTHIAZIDE. [Concomitant]
     Active Substance: HYDROCHLOROTHIAZIDE
  4. ASPIRIN. [Concomitant]
     Active Substance: ASPIRIN
  5. NEBIVOLONE [Concomitant]
  6. FUROSEMIDE. [Concomitant]
     Active Substance: FUROSEMIDE
     Indication: DIURETIC THERAPY
  7. AMIODARONE [Concomitant]
     Active Substance: AMIODARONE
     Indication: ATRIAL FIBRILLATION
  8. WARFARIN [Suspect]
     Active Substance: WARFARIN
  9. RIVAROXABAN [Interacting]
     Active Substance: RIVAROXABAN
  10. AMIODARONE [Concomitant]
     Active Substance: AMIODARONE

REACTIONS (4)
  - Ecchymosis [Unknown]
  - Medication error [Unknown]
  - Drug interaction [Unknown]
  - Shock haemorrhagic [Recovering/Resolving]
